FAERS Safety Report 8282684-3 (Version None)
Quarter: 2012Q2

REPORT INFORMATION
  Report Type: 
  Country: None (occurrence: None)
  Receive Date: 20120413
  Receipt Date: 20120410
  Transmission Date: 20120825
  Serious: Yes (Death, Hospitalization, Other)
  Sender: FDA-Public Use
  Company Number: GB-B.I. PHARMACEUTICALS,INC./RIDGEFIELD-2012-UK-00437UK

PATIENT
  Sex: Female
  Weight: 62 kg

DRUGS (9)
  1. CODEINE [Concomitant]
     Indication: ANALGESIC THERAPY
     Dosage: 30 MG
     Route: 048
     Dates: start: 20090301
  2. ACETAMINOPHEN [Concomitant]
     Indication: ANALGESIC THERAPY
     Dosage: 2 ANZ
     Route: 048
     Dates: start: 19950101
  3. OMEPRAZOLE [Concomitant]
     Indication: GASTRITIS PROPHYLAXIS
     Dosage: 20 MG
     Route: 048
     Dates: start: 20080701
  4. CALCIUM CARBONATE [Concomitant]
     Indication: BONE DENSITY DECREASED
     Dosage: 2 ANZ
     Route: 048
     Dates: start: 20090301
  5. ALENDRONIC ACID [Concomitant]
     Indication: BONE DENSITY DECREASED
     Dosage: 10 MG
     Route: 048
     Dates: start: 20090301
  6. FUROSEMIDE [Concomitant]
     Indication: CARDIAC FAILURE CONGESTIVE
     Dosage: 20 MG
     Route: 048
     Dates: start: 20120101
  7. PRADAXA [Suspect]
     Indication: ATRIAL FIBRILLATION
     Dosage: 75 MG
     Route: 048
     Dates: start: 20120118
  8. PREDNISOLONE [Concomitant]
     Indication: POLYMYALGIA RHEUMATICA
     Dosage: 5 MG
     Route: 048
     Dates: start: 20101101
  9. BISOPROLOL FUMARATE [Concomitant]
     Indication: ATRIAL FIBRILLATION
     Dosage: 2.5 MG
     Route: 048
     Dates: start: 20120101

REACTIONS (4)
  - FALL [None]
  - RENAL FAILURE ACUTE [None]
  - CARDIAC FAILURE CONGESTIVE [None]
  - HEAD INJURY [None]
